FAERS Safety Report 9689742 (Version 2)
Quarter: 2013Q4

REPORT INFORMATION
  Report Type: Report from Study
  Country: CA (occurrence: CA)
  Receive Date: 20131115
  Receipt Date: 20131129
  Transmission Date: 20140711
  Serious: Yes (Other)
  Sender: FDA-Public Use
  Company Number: CA-JNJFOC-20131106095

PATIENT
  Age: 36 Year
  Sex: Female

DRUGS (1)
  1. STELARA [Suspect]
     Indication: PSORIASIS
     Dosage: DOSE DELAYED
     Route: 042
     Dates: start: 20090920

REACTIONS (3)
  - Cellulitis [Unknown]
  - Immunosuppression [Unknown]
  - Incorrect route of drug administration [Unknown]
